FAERS Safety Report 11470779 (Version 2)
Quarter: 2015Q3

REPORT INFORMATION
  Report Type: Spontaneous
  Country: US (occurrence: US)
  Receive Date: 20150903
  Receipt Date: 20150903
  Transmission Date: 20151125
  Serious: No
  Sender: FDA-Public Use
  Company Number: US-ELI_LILLY_AND_COMPANY-US201111005992

PATIENT
  Age: 36 Year
  Sex: Female
  Weight: 125.62 kg

DRUGS (8)
  1. CYMBALTA [Suspect]
     Active Substance: DULOXETINE HYDROCHLORIDE
     Dosage: 120 MG, QD
     Route: 048
     Dates: start: 201110
  2. PREDNISONE. [Concomitant]
     Active Substance: PREDNISONE
  3. RELPAX [Concomitant]
     Active Substance: ELETRIPTAN HYDROBROMIDE
  4. TORADOL [Concomitant]
     Active Substance: KETOROLAC TROMETHAMINE
  5. AUGMENTIN [Concomitant]
     Active Substance: AMOXICILLIN\CLAVULANATE POTASSIUM
     Dosage: 875 DF, UNK
  6. AMBIEN [Concomitant]
     Active Substance: ZOLPIDEM TARTRATE
  7. CYMBALTA [Suspect]
     Active Substance: DULOXETINE HYDROCHLORIDE
     Indication: DEPRESSION
     Dosage: 60 MG, QD
  8. IMITREX [Concomitant]
     Active Substance: SUMATRIPTAN\SUMATRIPTAN SUCCINATE

REACTIONS (2)
  - Dysphagia [Recovered/Resolved]
  - Wrong technique in product usage process [Not Recovered/Not Resolved]
